FAERS Safety Report 7291933-X (Version None)
Quarter: 2011Q1

REPORT INFORMATION
  Report Type: 
  Country: None (occurrence: None)
  Receive Date: 20110214
  Receipt Date: 20110202
  Transmission Date: 20110831
  Serious: Yes (Other)
  Sender: FDA-Public Use
  Company Number: BR-GENENTECH-313448

PATIENT
  Sex: Female
  Weight: 60 kg

DRUGS (6)
  1. ANGIPRESS CD [Concomitant]
     Indication: HYPERTENSION
     Dosage: 50 MG, UNK
  2. METHOTREXATE [Concomitant]
     Indication: PRODUCT USED FOR UNKNOWN INDICATION
     Dosage: 2 MG, UNK
  3. RITUXIMAB [Suspect]
     Indication: RHEUMATOID ARTHRITIS
     Dosage: UNK UNK, Q6M
     Route: 065
     Dates: start: 20100328, end: 20100413
  4. PRELONE [Concomitant]
     Indication: HYPERTENSION
     Dosage: UNK
  5. METOPROLOL TARTRATE [Concomitant]
     Indication: PRODUCT USED FOR UNKNOWN INDICATION
     Dosage: UNK
  6. CORTICORTEN [Concomitant]
     Indication: PRODUCT USED FOR UNKNOWN INDICATION
     Dosage: 20 MG, UNK

REACTIONS (4)
  - LEPROSY [None]
  - THROMBOSIS [None]
  - SINUSITIS [None]
  - RHEUMATOID ARTHRITIS [None]
